FAERS Safety Report 4896374-8 (Version None)
Quarter: 2006Q1

REPORT INFORMATION
  Report Type: 
  Country: None (occurrence: None)
  Receive Date: 20060126
  Receipt Date: 20060113
  Transmission Date: 20060701
  Serious: Yes (Other)
  Sender: FDA-Public Use
  Company Number: 2006008685

PATIENT
  Sex: Female

DRUGS (2)
  1. FLUCONAZOLE [Suspect]
     Indication: SYSTEMIC CANDIDA
     Dosage: (100 MG)
  2. VINCRISTINE [Suspect]
     Indication: BLOOD DISORDER
     Dosage: (CYCLICAL)

REACTIONS (4)
  - DRUG INTERACTION [None]
  - NEUROGENIC BLADDER [None]
  - RENAL FAILURE [None]
  - SYSTEMIC CANDIDA [None]
